FAERS Safety Report 13916004 (Version 1)
Quarter: 2017Q3

REPORT INFORMATION
  Report Type: Spontaneous
  Country: US (occurrence: None)
  Receive Date: 20170827
  Receipt Date: 20170827
  Transmission Date: 20171127
  Serious: No
  Sender: FDA-Public Use
  Company Number: None

PATIENT
  Age: 69 Year
  Sex: Male

DRUGS (1)
  1. SUTENT [Suspect]
     Active Substance: SUNITINIB MALATE
     Indication: RENAL CANCER
     Dosage: DAILY FOR 28 DAYS, FOLLOWED BY 14 DAYS OFF
     Route: 048
     Dates: start: 201611, end: 201708

REACTIONS (2)
  - Therapy change [None]
  - Fatigue [None]

NARRATIVE: CASE EVENT DATE: 20170822
